FAERS Safety Report 23191186 (Version 1)
Quarter: 2023Q4

REPORT INFORMATION
  Report Type: Spontaneous
  Country: US (occurrence: None)
  Receive Date: 20231114
  Receipt Date: 20231114
  Transmission Date: 20240109
  Serious: Yes (unspecified)
  Sender: FDA-Public Use
  Company Number: None

PATIENT
  Age: 53 Year
  Sex: Female
  Weight: 57.4 kg

DRUGS (1)
  1. LARYNG-O-JET [Suspect]
     Active Substance: LIDOCAINE HYDROCHLORIDE
     Indication: Anaesthesia procedure
     Dosage: FREQUENCY : AS NEEDED;?
     Route: 049
     Dates: start: 20231107, end: 20231107

REACTIONS (2)
  - Foreign body in respiratory tract [None]
  - Device breakage [None]

NARRATIVE: CASE EVENT DATE: 20231107
